FAERS Safety Report 15074610 (Version 1)
Quarter: 2018Q2

REPORT INFORMATION
  Report Type: Spontaneous
  Country: US (occurrence: US)
  Receive Date: 20180627
  Receipt Date: 20180627
  Transmission Date: 20180711
  Serious: Yes (Other)
  Sender: FDA-Public Use
  Company Number: US-SAOL THERAPEUTICS-2018SAO00796

PATIENT
  Age: 47 Year
  Sex: Male

DRUGS (6)
  1. DILAUDID [Suspect]
     Active Substance: HYDROMORPHONE HYDROCHLORIDE
     Dosage: 0.17569 MG, \DAY
     Dates: start: 20180518
  2. BACLOFEN. [Suspect]
     Active Substance: BACLOFEN
     Dosage: 1513.1 ?G, \DAY
     Route: 037
     Dates: end: 20180518
  3. DILAUDID [Suspect]
     Active Substance: HYDROMORPHONE HYDROCHLORIDE
     Dosage: 0.19512 MG, \DAY
     Route: 037
     Dates: end: 20180518
  4. PRIALT [Suspect]
     Active Substance: ZICONOTIDE ACETATE
     Dosage: 3.9 ?G, \DAY
     Route: 037
     Dates: end: 20180518
  5. BACLOFEN. [Suspect]
     Active Substance: BACLOFEN
     Dosage: 1362.5 ?G, \DAY
     Dates: start: 20180518
  6. PRIALT [Suspect]
     Active Substance: ZICONOTIDE ACETATE
     Dosage: 3.6016 ?G, \DAY
     Dates: start: 20180518

REACTIONS (1)
  - Hallucination [Unknown]

NARRATIVE: CASE EVENT DATE: 20180518
